FAERS Safety Report 18442598 (Version 3)
Quarter: 2021Q3

REPORT INFORMATION
  Report Type: Spontaneous
  Country: US (occurrence: US)
  Receive Date: 20201029
  Receipt Date: 20210902
  Transmission Date: 20211014
  Serious: No
  Sender: FDA-Public Use
  Company Number: US-PFIZER INC-2020417275

PATIENT
  Age: 55 Year
  Sex: Female

DRUGS (2)
  1. LYRICA [Suspect]
     Active Substance: PREGABALIN
     Indication: SCIATICA
     Dosage: UNK UNK, 1X/DAY (TAKE IT AT NIGHT )
  2. LYRICA [Suspect]
     Active Substance: PREGABALIN
     Dosage: 150 MG, 1X/DAY (TAKE 1 CAPSULE BY MOUTH EVERY NIGHT AT BEDTIME)
     Route: 048

REACTIONS (3)
  - Balance disorder [Unknown]
  - Vertigo [Unknown]
  - Dysarthria [Unknown]
